FAERS Safety Report 13250567 (Version 1)
Quarter: 2017Q1

REPORT INFORMATION
  Report Type: Spontaneous
  Country: JP (occurrence: JP)
  Receive Date: 20170219
  Receipt Date: 20170219
  Transmission Date: 20170428
  Serious: Yes (Death, Other)
  Sender: FDA-Public Use
  Company Number: JP-ROCHE-1860373

PATIENT
  Age: 69 Year
  Sex: Female
  Weight: 41 kg

DRUGS (4)
  1. PACLITAXEL. [Concomitant]
     Active Substance: PACLITAXEL
     Indication: CERVIX CARCINOMA
     Dosage: DOSAGE IS UNCERTAIN.
     Route: 041
     Dates: start: 20160906, end: 20161101
  2. NEDAPLATIN [Concomitant]
     Active Substance: NEDAPLATIN
     Indication: CERVIX CARCINOMA
     Route: 065
     Dates: start: 20160524, end: 20160628
  3. AVASTIN [Suspect]
     Active Substance: BEVACIZUMAB
     Indication: CERVIX CARCINOMA
     Dosage: MOST RECENT DOSE PRIOR TO THE EVENT WAS TAKEN ON 01/NOV/2016.  TREATMENT LINE: 3 COMPLETED TREATMENT
     Route: 041
     Dates: start: 20160906
  4. CARBOPLATIN. [Concomitant]
     Active Substance: CARBOPLATIN
     Indication: CERVIX CARCINOMA
     Dosage: DOSAGE IS UNCERTAIN.
     Route: 041
     Dates: start: 20160906, end: 20161101

REACTIONS (9)
  - Tumour necrosis [Unknown]
  - Ileus [Unknown]
  - Bone marrow failure [Unknown]
  - Catheter site haemorrhage [Unknown]
  - Genital haemorrhage [Unknown]
  - Septic shock [Fatal]
  - Cervix carcinoma [Fatal]
  - Upper gastrointestinal perforation [Fatal]
  - Melaena [Unknown]

NARRATIVE: CASE EVENT DATE: 20161103
